FAERS Safety Report 5004956-8 (Version None)
Quarter: 2006Q1

REPORT INFORMATION
  Report Type: 
  Country: None (occurrence: None)
  Receive Date: 20060321
  Receipt Date: 20051206
  Transmission Date: 20060701
  Serious: No
  Sender: FDA-Public Use
  Company Number: YPA20050494

PATIENT
  Age: 83 Year
  Sex: Female
  Weight: 68.2 kg

DRUGS (7)
  1. VESICARE [Suspect]
     Indication: HYPERTONIC BLADDER
     Dosage: 5 MG, IUD/QD, ORAL
     Route: 048
     Dates: start: 20050901, end: 20050101
  2. COUMADIN [Concomitant]
  3. PRAVACHOL [Concomitant]
  4. HYZAAR [Concomitant]
  5. FOSAMAX [Concomitant]
  6. CITRACAL (CALCIUM CITRATE) [Concomitant]
  7. VITAMINS TABLET [Concomitant]

REACTIONS (3)
  - CHROMATURIA [None]
  - INFLUENZA LIKE ILLNESS [None]
  - INSOMNIA [None]
